FAERS Safety Report 14319454 (Version 3)
Quarter: 2018Q3

REPORT INFORMATION
  Report Type: Spontaneous
  Country: NL (occurrence: NL)
  Receive Date: 20171222
  Receipt Date: 20180731
  Transmission Date: 20181010
  Serious: Yes (Hospitalization, Other)
  Sender: FDA-Public Use
  Company Number: NL-MYLANLABS-2017M1080695

PATIENT
  Age: 62 Year
  Sex: Male

DRUGS (6)
  1. PREGABALIN. [Interacting]
     Active Substance: PREGABALIN
     Indication: MALIGNANT NEOPLASM PROGRESSION
     Dosage: UNK
     Route: 062
  2. DEXAMETHASONE. [Interacting]
     Active Substance: DEXAMETHASONE
     Indication: METASTASES TO BONE
     Dosage: 16 MG, QD
  3. ENZALUTAMIDE [Interacting]
     Active Substance: ENZALUTAMIDE
     Indication: HORMONE-REFRACTORY PROSTATE CANCER
     Dosage: UNK UNK, QD
     Route: 065
  4. FENTANYL. [Suspect]
     Active Substance: FENTANYL
     Dosage: UNK
     Route: 062
  5. AMITRIPTYLINE [Interacting]
     Active Substance: AMITRIPTYLINE
     Indication: PAIN
     Dosage: UNK
     Route: 062
  6. FENTANYL. [Suspect]
     Active Substance: FENTANYL
     Indication: PAIN
     Dosage: 75 ?G, QH
     Route: 062

REACTIONS (7)
  - Cervical vertebral fracture [Unknown]
  - Pain [Unknown]
  - Malignant neoplasm progression [Unknown]
  - Thoracic vertebral fracture [Unknown]
  - Drug ineffective [Unknown]
  - Spinal cord compression [Unknown]
  - Drug interaction [Unknown]
